FAERS Safety Report 9044900 (Version 1)
Quarter: 2013Q1

REPORT INFORMATION
  Report Type: Report from Study
  Country: JP (occurrence: JP)
  Receive Date: 20130130
  Receipt Date: 20130130
  Transmission Date: 20140127
  Serious: Yes (Other)
  Sender: FDA-Public Use
  Company Number: JP-GLAXOSMITHKLINE-B0859977A

PATIENT
  Sex: Female

DRUGS (10)
  1. SERETIDE [Suspect]
     Indication: ASTHMA
     Dosage: 500MCG TWICE PER DAY
     Route: 055
     Dates: start: 20090528, end: 20100126
  2. SERETIDE [Suspect]
     Indication: ASTHMA
     Dosage: 250MCG TWICE PER DAY
     Route: 055
     Dates: start: 20100126, end: 20100224
  3. SERETIDE [Suspect]
     Indication: ASTHMA
     Dosage: 250MCG TWICE PER DAY
     Route: 055
     Dates: start: 20100419
  4. KIPRES [Concomitant]
     Indication: ASTHMA
     Route: 048
  5. IPD [Concomitant]
     Indication: ASTHMA
     Route: 048
  6. SPIRIVA [Concomitant]
     Indication: ASTHMA
     Route: 055
  7. MUCODYNE [Concomitant]
     Indication: ASTHMA
     Route: 048
     Dates: start: 20090624
  8. CALBLOCK [Concomitant]
     Route: 048
  9. FLUITRAN [Concomitant]
     Route: 048
  10. ALDACTONE A [Concomitant]
     Indication: HYPERTENSION
     Route: 048

REACTIONS (2)
  - Laryngeal oedema [Unknown]
  - Dysphonia [Recovered/Resolved]
